FAERS Safety Report 11737919 (Version 3)
Quarter: 2018Q4

REPORT INFORMATION
  Report Type: Spontaneous
  Country: DE (occurrence: DE)
  Receive Date: 20151113
  Receipt Date: 20181011
  Transmission Date: 20190204
  Serious: Yes (Hospitalization, Other)
  Sender: FDA-Public Use
  Company Number: PHHY2015DE145946

PATIENT
  Age: 75 Year
  Sex: Female

DRUGS (10)
  1. MIRTAZAPINE. [Suspect]
     Active Substance: MIRTAZAPINE
     Indication: PAIN
     Dosage: 15 MG, QD
     Route: 065
  2. RAMIPRIL. [Concomitant]
     Active Substance: RAMIPRIL
     Indication: PRODUCT USED FOR UNKNOWN INDICATION
     Route: 065
  3. MIRTAZAPINE. [Interacting]
     Active Substance: MIRTAZAPINE
     Indication: DEPRESSION
     Dosage: 25 MG, QD
     Route: 065
  4. MIRTAZAPINE. [Interacting]
     Active Substance: MIRTAZAPINE
     Dosage: GRADUALLY REDUCED
     Route: 048
  5. MIRTAZAPINE. [Interacting]
     Active Substance: MIRTAZAPINE
  6. MIRTAZAPINE. [Interacting]
     Active Substance: MIRTAZAPINE
     Dosage: 30 MG/DAILY
     Route: 048
     Dates: start: 2013, end: 2013
  7. BISOPROLOL [Concomitant]
     Active Substance: BISOPROLOL
     Indication: PRODUCT USED FOR UNKNOWN INDICATION
     Route: 065
  8. MELPERONE [Interacting]
     Active Substance: MELPERONE
     Indication: PAIN
     Dosage: 25 MG, QD
     Route: 065
  9. MIRTAZAPINE. [Interacting]
     Active Substance: MIRTAZAPINE
     Dosage: INITIALLY UP TO 15 MG/DAILY
     Route: 048
  10. AMLODIPINE [Concomitant]
     Active Substance: AMLODIPINE BESYLATE
     Indication: PRODUCT USED FOR UNKNOWN INDICATION
     Route: 065

REACTIONS (3)
  - Acute motor-sensory axonal neuropathy [Recovered/Resolved]
  - Drug interaction [Unknown]
  - Polyneuropathy [Recovered/Resolved]
